FAERS Safety Report 7610615-5 (Version None)
Quarter: 2011Q3

REPORT INFORMATION
  Report Type: 
  Country: None (occurrence: None)
  Receive Date: 20110715
  Receipt Date: 20110712
  Transmission Date: 20111222
  Serious: Yes (Death)
  Sender: FDA-Public Use
  Company Number: JP-ELI_LILLY_AND_COMPANY-JP201107002926

PATIENT
  Age: 64 Year
  Sex: Male

DRUGS (2)
  1. ALIMTA [Suspect]
     Indication: LUNG NEOPLASM MALIGNANT
     Dosage: 500 MG/M2, UNK
     Route: 042
  2. CISPLATIN [Concomitant]
     Indication: LUNG NEOPLASM MALIGNANT

REACTIONS (2)
  - BONE MARROW FAILURE [None]
  - INTERSTITIAL LUNG DISEASE [None]
